FAERS Safety Report 7274308-9 (Version None)
Quarter: 2011Q1

REPORT INFORMATION
  Report Type: 
  Country: None (occurrence: None)
  Receive Date: 20110201
  Receipt Date: 20110201
  Transmission Date: 20110831
  Serious: Yes (Hospitalization)
  Sender: FDA-Public Use
  Company Number: None

PATIENT
  Sex: Male
  Weight: 100.5 kg

DRUGS (9)
  1. REVLIMID [Suspect]
     Indication: PROSTATE CANCER
     Dosage: 21MG QD X 21 PO
     Route: 048
     Dates: start: 20101231, end: 20110120
  2. CASODEX [Concomitant]
  3. TRAMADOL [Concomitant]
  4. BENAZEPRIL HYDROCHLORIDE [Concomitant]
  5. AMLODIPINE BESYLATE [Concomitant]
  6. WARFARIN SODIUM [Concomitant]
  7. CARDURA [Concomitant]
  8. ELIGARD [Concomitant]
  9. FINASTERIDE [Concomitant]

REACTIONS (3)
  - REFUSAL OF TREATMENT BY PATIENT [None]
  - ATRIAL FIBRILLATION [None]
  - SYNCOPE [None]
